FAERS Safety Report 9498416 (Version 1)
Quarter: 2013Q3

REPORT INFORMATION
  Report Type: Spontaneous
  Country: GB (occurrence: GB)
  Receive Date: 20130904
  Receipt Date: 20130904
  Transmission Date: 20140515
  Serious: Yes (Disabling)
  Sender: FDA-Public Use
  Company Number: GB-WATSON-2013-15434

PATIENT
  Age: 47 Year
  Sex: Female

DRUGS (6)
  1. DICLOFENAC (UNKNOWN) [Suspect]
     Indication: PERIARTHRITIS
     Dosage: 50 MG MILLIGRAM(S) DOSAGE(S)=3 INTERVAL= 1 DAY(S)
     Route: 065
     Dates: end: 20121219
  2. CORTISONE [Suspect]
     Indication: PERIARTHRITIS
     Dosage: UNK
     Route: 065
     Dates: start: 20121205, end: 20121205
  3. NAPROXEN [Concomitant]
     Indication: PRODUCT USED FOR UNKNOWN INDICATION
     Dosage: 500 MG MILLIGRAM(S) DOSAGE(S)=2 INTERVAL= 1 DAY(S)
     Route: 065
     Dates: start: 201208, end: 20121119
  4. NORETHISTERONE [Concomitant]
     Indication: PRODUCT USED FOR UNKNOWN INDICATION
     Dosage: 5 MG MILLIGRAM(S) DOSAGE(S)=3 INTERVAL= 1 DAY(S)
     Route: 065
     Dates: start: 201208, end: 20121119
  5. TEVA UK AMITRIPTYLINE [Concomitant]
     Indication: PRODUCT USED FOR UNKNOWN INDICATION
     Dosage: 10 MG MILLIGRAM(S) DOSAGE(S)=1 INTERVAL= 1 DAY(S)
     Route: 065
     Dates: start: 2012, end: 20121119
  6. TEVA UK LANSOPRAZOLE [Concomitant]
     Indication: PRODUCT USED FOR UNKNOWN INDICATION
     Dosage: 15 MG MILLIGRAM(S) DOSAGE(S)=1 INTERVAL= 1 DAY(S)
     Route: 065
     Dates: start: 2012, end: 20121119

REACTIONS (13)
  - Diarrhoea [Unknown]
  - Weight decreased [Unknown]
  - Abdominal pain lower [Unknown]
  - Fatigue [Unknown]
  - Proctalgia [Unknown]
  - Haematochezia [Unknown]
  - Colitis microscopic [Unknown]
  - Decreased appetite [Unknown]
  - Sensation of pressure [Unknown]
  - Rectal haemorrhage [Unknown]
  - Malaise [Unknown]
  - Mobility decreased [Unknown]
  - Insomnia [Unknown]
